FAERS Safety Report 4282949-6 (Version None)
Quarter: 2004Q1

REPORT INFORMATION
  Report Type: 
  Country: None (occurrence: None)
  Receive Date: 20040130
  Receipt Date: 20040120
  Transmission Date: 20041129
  Serious: Yes (Hospitalization)
  Sender: FDA-Public Use
  Company Number: PHNU2004DE00587

PATIENT
  Age: 59 Year
  Sex: Male

DRUGS (6)
  1. PROVAS [Suspect]
     Dosage: 80 MG/D
     Route: 048
     Dates: start: 20031106, end: 20031114
  2. PROVAS [Suspect]
     Dosage: 40 MG/D
     Route: 048
     Dates: start: 20031114, end: 20031126
  3. ATORVASTATIN [Concomitant]
     Route: 048
     Dates: start: 20030918
  4. CARVEDILOL [Concomitant]
     Dosage: 25 MG, BID
     Route: 048
     Dates: start: 20030918
  5. CEFPODOXIME PROXETIL [Concomitant]
     Dosage: 200 MG, BID
     Route: 048
  6. POVIDONE IODINE [Concomitant]

REACTIONS (3)
  - BACK PAIN [None]
  - BLISTER [None]
  - DRUG ERUPTION [None]
